FAERS Safety Report 8935135 (Version 2)
Quarter: 2013Q1

REPORT INFORMATION
  Report Type: Spontaneous
  Country: US (occurrence: US)
  Receive Date: 20121129
  Receipt Date: 20130103
  Transmission Date: 20140127
  Serious: Yes (Hospitalization)
  Sender: FDA-Public Use
  Company Number: US-B.I. PHARMACEUTICALS,INC./RIDGEFIELD-2012-BI-01224BP

PATIENT
  Sex: Female
  Weight: 85.7 kg

DRUGS (5)
  1. PRADAXA [Suspect]
     Indication: ATRIAL FIBRILLATION
     Dosage: 300 MG
     Route: 048
     Dates: start: 201011
  2. ZIAC [Concomitant]
     Indication: HYPERTENSION
  3. CALCIUM [Concomitant]
     Indication: MENOPAUSE
     Dosage: 1200 MG
  4. ASA [Concomitant]
     Indication: CORONARY ARTERY DISEASE
     Dosage: 81 MG
  5. MVI [Concomitant]

REACTIONS (2)
  - Pneumonia [Recovered/Resolved]
  - Asthenia [Not Recovered/Not Resolved]
